FAERS Safety Report 9507696 (Version 2)
Quarter: 2013Q3

REPORT INFORMATION
  Report Type: Spontaneous
  Country: IT (occurrence: IT)
  Receive Date: 20130909
  Receipt Date: 20130910
  Transmission Date: 20140515
  Serious: Yes (Hospitalization)
  Sender: FDA-Public Use
  Company Number: IT-SANOFI-AVENTIS-2013SA088839

PATIENT
  Age: 85 Year
  Sex: Male

DRUGS (10)
  1. LANTUS [Suspect]
     Indication: DIABETES MELLITUS
     Route: 058
     Dates: start: 20130101, end: 20130804
  2. PLAVIX [Suspect]
     Indication: THROMBOSIS PROPHYLAXIS
     Route: 048
     Dates: start: 20130101, end: 20130805
  3. HUMALOG [Suspect]
     Indication: DIABETES MELLITUS
     Route: 058
     Dates: start: 20130101, end: 20130805
  4. CARDIOASPIRIN [Suspect]
     Indication: THROMBOSIS PROPHYLAXIS
     Dosage: STRENGTH: 100MG
     Route: 048
     Dates: start: 20130101, end: 20130805
  5. BISOPROLOL FUMARATE [Concomitant]
     Route: 048
  6. PANTOPRAZOLE [Concomitant]
     Route: 048
  7. SIMVASTATIN [Concomitant]
     Route: 048
  8. NORVASC [Concomitant]
     Dosage: STRENGTH: 5 MG
     Route: 048
  9. TRIATEC [Concomitant]
     Dosage: STRENGTH: 5 MG
     Route: 048
  10. LASIX [Concomitant]
     Route: 048

REACTIONS (2)
  - Hypoglycaemia [Unknown]
  - Rectal haemorrhage [Unknown]
